FAERS Safety Report 5362228-6 (Version None)
Quarter: 2007Q2

REPORT INFORMATION
  Report Type: 
  Country: None (occurrence: None)
  Receive Date: 20070619
  Receipt Date: 20070601
  Transmission Date: 20071010
  Serious: Yes (Death, Life-Threatening)
  Sender: FDA-Public Use
  Company Number: FR-ROCHE-500506

PATIENT
  Age: 74 Year
  Sex: Male

DRUGS (5)
  1. ROCEPHIN [Suspect]
     Dosage: STRENGTH REPORTED AS 2G/40ML.
     Route: 042
     Dates: end: 20070329
  2. METHYLPREDNISOLONE 16MG TAB [Interacting]
     Indication: DRUG USE FOR UNKNOWN INDICATION
     Dosage: DRUG REPORTED AS SOLUMEDROL, STRENGTH REPORTED AS 40MG/2ML.
     Route: 042
     Dates: end: 20070329
  3. LASIX [Interacting]
     Indication: ESSENTIAL HYPERTENSION
     Dosage: LONG-TERM TREATMENT.
     Route: 048
     Dates: end: 20070329
  4. PREVISCAN [Interacting]
     Indication: DRUG USE FOR UNKNOWN INDICATION
     Route: 048
     Dates: end: 20070329
  5. CIFLOX [Interacting]
     Route: 048
     Dates: end: 20070329

REACTIONS (2)
  - CEREBRAL HAEMORRHAGE [None]
  - DRUG INTERACTION [None]
